FAERS Safety Report 11052246 (Version 1)
Quarter: 2015Q2

REPORT INFORMATION
  Report Type: Report from Study
  Country: US (occurrence: US)
  Receive Date: 20150421
  Receipt Date: 20150421
  Transmission Date: 20150821
  Serious: Yes (Hospitalization)
  Sender: FDA-Public Use
  Company Number: PHEH2015US007070

PATIENT
  Sex: Female

DRUGS (1)
  1. FARYDAK [Suspect]
     Active Substance: PANOBINOSTAT
     Indication: PLASMA CELL MYELOMA
     Dosage: 20 MG  (EVERY OTHER DAY 3 DOSES)
     Route: 048
     Dates: start: 20150328

REACTIONS (4)
  - Intestinal obstruction [Unknown]
  - Abdominal pain [Unknown]
  - Pelvic mass [Unknown]
  - Platelet count decreased [Unknown]
